FAERS Safety Report 19281500 (Version 2)
Quarter: 2021Q2

REPORT INFORMATION
  Report Type: Spontaneous
  Country: SE (occurrence: SE)
  Receive Date: 20210520
  Receipt Date: 20210607
  Transmission Date: 20210717
  Serious: Yes (Death)
  Sender: FDA-Public Use
  Company Number: SE-ALSI-2021000141

PATIENT
  Age: 64 Year
  Sex: Male

DRUGS (1)
  1. OXYGEN. [Suspect]
     Active Substance: OXYGEN
     Indication: PRODUCT USED FOR UNKNOWN INDICATION
     Route: 055
     Dates: start: 20210503, end: 20210503

REACTIONS (2)
  - Drug-device incompatibility [Fatal]
  - Accidental underdose [Fatal]

NARRATIVE: CASE EVENT DATE: 20210503
